FAERS Safety Report 14999513 (Version 1)
Quarter: 2018Q2

REPORT INFORMATION
  Report Type: Spontaneous
  Country: IT (occurrence: IT)
  Receive Date: 20180612
  Receipt Date: 20180612
  Transmission Date: 20180711
  Serious: Yes (Other)
  Sender: FDA-Public Use
  Company Number: IT-VISTAPHARM, INC.-VER201806-000686

PATIENT
  Age: 44 Year
  Sex: Male

DRUGS (4)
  1. METHADONE [Suspect]
     Active Substance: METHADONE HYDROCHLORIDE
     Dosage: UNKNOWN
     Route: 042
  2. METHADONE [Suspect]
     Active Substance: METHADONE HYDROCHLORIDE
     Indication: DRUG DEPENDENCE
     Dosage: 330 MG DAILY
  3. FENTANYL. [Concomitant]
     Active Substance: FENTANYL
     Indication: PSYCHOMOTOR HYPERACTIVITY
     Route: 042
  4. MIDAZOLAM [Concomitant]
     Active Substance: MIDAZOLAM HYDROCHLORIDE
     Indication: PSYCHOMOTOR HYPERACTIVITY
     Route: 042

REACTIONS (3)
  - Intentional product misuse [Unknown]
  - Pneumoconiosis [Recovered/Resolved]
  - Cellulitis [Unknown]
